FAERS Safety Report 8966528 (Version 1)
Quarter: 2012Q4

REPORT INFORMATION
  Report Type: Spontaneous
  Country: DK (occurrence: None)
  Receive Date: 20121206
  Receipt Date: 20121206
  Transmission Date: 20130627
  Serious: Yes (Hospitalization)
  Sender: FDA-Public Use
  Company Number: 2012MA013816

PATIENT
  Age: 54 Year

DRUGS (13)
  1. LEVETIRACETAM ORAL SOLUTION, 100MG/ML (AMALLC) (LEVETIRACETAM0 [Suspect]
     Indication: EPILEPSY
     Route: 048
  2. CIPROFLOXACIN (CIPROFLOXACIN) [Suspect]
     Route: 048
     Dates: start: 20121027, end: 20121028
  3. NITROFURANTOIN [Suspect]
     Route: 048
     Dates: start: 20121028, end: 20121029
  4. TRIMETHOPRIM [Suspect]
     Route: 048
     Dates: start: 20121029, end: 20121030
  5. TOPIRAMATE [Concomitant]
  6. LOPERAMIDE [Concomitant]
  7. OMEPRAZOLE [Concomitant]
  8. DOMPERIDONE [Concomitant]
  9. PARACETAMOL [Concomitant]
  10. CHLORPHENAMINE [Concomitant]
  11. CYCLIZINE [Concomitant]
  12. METOCLOPRAMIDE [Concomitant]
  13. COLESTYRAMINE [Concomitant]

REACTIONS (2)
  - Drug reaction with eosinophilia and systemic symptoms [None]
  - Intestinal perforation [None]
